FAERS Safety Report 8565401-9 (Version None)
Quarter: 2012Q3

REPORT INFORMATION
  Report Type: 
  Country: None (occurrence: None)
  Receive Date: 20120803
  Receipt Date: 20110124
  Transmission Date: 20120928
  Serious: Yes (Life-Threatening, Hospitalization, Other)
  Sender: FDA-Public Use
  Company Number: US-ROCHE-755676

PATIENT
  Sex: Female
  Weight: 66.7 kg

DRUGS (11)
  1. FLEXERIL [Concomitant]
     Dosage: NOT PRESCRIBED.
  2. CYMBALTA [Concomitant]
  3. PEGASYS [Suspect]
     Indication: HEPATITIS C
     Dosage: OVERDOSE
     Route: 058
  4. TEMAZEPAM [Concomitant]
  5. COPEGUS [Suspect]
     Indication: HEPATITIS C
     Route: 048
     Dates: start: 20100913, end: 20110103
  6. INVEGA [Concomitant]
     Indication: SCHIZOAFFECTIVE DISORDER
     Dosage: TAKEN AT NIGHT, NOT PRESCRIBED.
  7. OMEPRAZOLE [Concomitant]
  8. KLONOPIN [Concomitant]
  9. PEGASYS [Suspect]
     Route: 058
     Dates: start: 20100913, end: 20110103
  10. GABAPENTIN [Concomitant]
     Dosage: NOT PRESCRIBED.
  11. OXYCODONE HCL [Concomitant]
     Indication: SCHIZOAFFECTIVE DISORDER

REACTIONS (8)
  - OVERDOSE [None]
  - SYNCOPE [None]
  - PARANOIA [None]
  - PNEUMONITIS [None]
  - SUICIDE ATTEMPT [None]
  - PSYCHOTIC DISORDER [None]
  - NEUTROPENIA [None]
  - ANAEMIA [None]
